FAERS Safety Report 6751666-2 (Version None)
Quarter: 2010Q2

REPORT INFORMATION
  Report Type: 
  Country: None (occurrence: None)
  Receive Date: 20100602
  Receipt Date: 20100528
  Transmission Date: 20101027
  Serious: Yes (Hospitalization)
  Sender: FDA-Public Use
  Company Number: A0862075A

PATIENT
  Age: 72 Year
  Sex: Female

DRUGS (1)
  1. AVANDIA [Suspect]
     Dosage: 4MG PER DAY
     Dates: start: 20030701

REACTIONS (4)
  - CARDIAC DISORDER [None]
  - CATHETERISATION CARDIAC [None]
  - CONDITION AGGRAVATED [None]
  - CORONARY ARTERIAL STENT INSERTION [None]
